FAERS Safety Report 25322786 (Version 1)
Quarter: 2025Q2

REPORT INFORMATION
  Report Type: Spontaneous
  Country: US (occurrence: US)
  Receive Date: 20250516
  Receipt Date: 20250516
  Transmission Date: 20250716
  Serious: No
  Sender: ROCHE
  Company Number: US-ROCHE-10000279611

PATIENT
  Sex: Female

DRUGS (1)
  1. TECENTRIQ HYBREZA [Suspect]
     Active Substance: ATEZOLIZUMAB\HYALURONIDASE-TQJS
     Indication: Product used for unknown indication
     Route: 058
     Dates: start: 2025

REACTIONS (3)
  - Injection site swelling [Recovered/Resolved]
  - Pain [Recovered/Resolved]
  - Gait disturbance [Recovered/Resolved]
